FAERS Safety Report 5247435-5 (Version None)
Quarter: 2007Q1

REPORT INFORMATION
  Report Type: 
  Country: None (occurrence: None)
  Receive Date: 20070220
  Receipt Date: 20070112
  Transmission Date: 20070707
  Serious: No
  Sender: FDA-Public Use
  Company Number: US019371

PATIENT
  Sex: Male

DRUGS (2)
  1. FENTORA [Suspect]
     Indication: CANCER PAIN
     Dosage: 1600 UG BID BUCCAL
     Route: 002
  2. MORPHINE [Concomitant]

REACTIONS (2)
  - DRUG PRESCRIBING ERROR [None]
  - INTERCEPTED DRUG DISPENSING ERROR [None]
